FAERS Safety Report 9425105 (Version 2)
Quarter: 2013Q4

REPORT INFORMATION
  Report Type: Spontaneous
  Country: US (occurrence: US)
  Receive Date: 20130729
  Receipt Date: 20131101
  Transmission Date: 20140711
  Serious: Yes (Hospitalization)
  Sender: FDA-Public Use
  Company Number: US-B.I. PHARMACEUTICALS,INC./RIDGEFIELD-2013-BI-21899BP

PATIENT
  Age: 80 Year
  Sex: Male
  Weight: 102 kg

DRUGS (10)
  1. SPIRIVA [Suspect]
     Indication: EMPHYSEMA
     Dosage: 18 MCG
     Route: 055
     Dates: start: 2010
  2. ALBUTEROL [Concomitant]
     Indication: EMPHYSEMA
     Route: 055
  3. ADVAIR [Concomitant]
     Indication: EMPHYSEMA
     Dosage: FORMULATION: INHALATION SOLUTION
     Route: 055
     Dates: start: 2003
  4. CARDIZEM [Concomitant]
     Indication: ATRIAL FIBRILLATION
     Route: 048
     Dates: start: 2008
  5. SYNTHROID [Concomitant]
     Indication: HYPOTHYROIDISM
     Dosage: 150 MG
     Route: 048
  6. PREDNISONE [Concomitant]
     Indication: EMPHYSEMA
     Dosage: 10 MG
     Route: 048
  7. SPIRONOLACTONE [Concomitant]
     Indication: FLUID RETENTION
     Dosage: 25 MG
     Route: 048
  8. TRIAMTERENE-HCTZ [Concomitant]
     Indication: HYPERTENSION
     Dosage: STRENGTH: 37.5/25 MG; DAILY DOSE: 37.5/25 MG
     Route: 048
  9. LUNESTA [Concomitant]
     Indication: SLEEP DISORDER
     Dosage: 2 MG
     Route: 048
  10. TRAZODONE [Concomitant]
     Indication: ANXIETY
     Dosage: 50 MG
     Route: 048

REACTIONS (6)
  - Wheezing [Recovered/Resolved]
  - Emphysema [Recovered/Resolved]
  - Visual field defect [Not Recovered/Not Resolved]
  - Fall [Recovered/Resolved]
  - Contusion [Recovered/Resolved]
  - Cyst [Recovered/Resolved]
